FAERS Safety Report 15631804 (Version 1)
Quarter: 2018Q4

REPORT INFORMATION
  Report Type: Spontaneous
  Country: US (occurrence: US)
  Receive Date: 20181118
  Receipt Date: 20181118
  Transmission Date: 20190205
  Serious: No
  Sender: FDA-Public Use
  Company Number: None

PATIENT
  Age: 76 Year
  Sex: Female
  Weight: 67.5 kg

DRUGS (1)
  1. CREST PRO-HEALTH ANTICAVITY FLUORIDE RINSE [Suspect]
     Active Substance: SODIUM FLUORIDE
     Indication: DENTAL DISORDER PROPHYLAXIS
     Dosage: ?          QUANTITY:2 TEASPOON(S);OTHER ROUTE:RINSE?

REACTIONS (3)
  - Oral mucosal exfoliation [None]
  - Oral discomfort [None]
  - Tongue discomfort [None]

NARRATIVE: CASE EVENT DATE: 20181101
